FAERS Safety Report 23625808 (Version 1)
Quarter: 2024Q1

REPORT INFORMATION
  Report Type: Spontaneous
  Country: US (occurrence: US)
  Receive Date: 20240313
  Receipt Date: 20240313
  Transmission Date: 20240409
  Serious: Yes (Other)
  Sender: FDA-Public Use
  Company Number: US-JNJFOC-20240308646

PATIENT
  Weight: 71.732 kg

DRUGS (2)
  1. REMICADE [Suspect]
     Active Substance: INFLIXIMAB
     Indication: Colitis ulcerative
     Route: 041
  2. INFLECTRA [Suspect]
     Active Substance: INFLIXIMAB-DYYB
     Indication: Colitis ulcerative
     Route: 065

REACTIONS (8)
  - Cardiac disorder [Unknown]
  - Supraventricular tachycardia [Recovering/Resolving]
  - Epistaxis [Unknown]
  - Weight decreased [Recovered/Resolved]
  - Night sweats [Not Recovered/Not Resolved]
  - Insomnia [Unknown]
  - Fatigue [Unknown]
  - Laryngitis [Unknown]

NARRATIVE: CASE EVENT DATE: 20231201
